FAERS Safety Report 23251479 (Version 1)
Quarter: 2023Q4

REPORT INFORMATION
  Report Type: Spontaneous
  Country: US (occurrence: None)
  Receive Date: 20231130
  Receipt Date: 20231130
  Transmission Date: 20240110
  Serious: No
  Sender: FDA-Public Use
  Company Number: None

PATIENT
  Age: 75 Year
  Sex: Female

DRUGS (2)
  1. OTEZLA [Suspect]
     Active Substance: APREMILAST
     Indication: Psoriasis
     Dosage: TAKE 1 TABLET BY MOUTH TWICE  DAILY AS DIRECTED.
     Route: 048
     Dates: start: 202311
  2. OTEZLA [Suspect]
     Active Substance: APREMILAST
     Indication: Psoriatic arthropathy

REACTIONS (7)
  - Dizziness [None]
  - Balance disorder [None]
  - Crying [None]
  - Inadequate analgesia [None]
  - Depression [None]
  - Diarrhoea [None]
  - Therapy interrupted [None]
